FAERS Safety Report 5382937-2 (Version None)
Quarter: 2007Q2

REPORT INFORMATION
  Report Type: 
  Country: None (occurrence: None)
  Receive Date: 20070629
  Receipt Date: 20070409
  Transmission Date: 20071010
  Serious: Yes (Hospitalization)
  Sender: FDA-Public Use
  Company Number: US200704001895

PATIENT
  Age: 77 Year
  Sex: Female

DRUGS (3)
  1. HUMALOG [Suspect]
     Dosage: 3/D
     Dates: start: 20000101
  2. HUMALOG [Suspect]
     Dosage: 3/D
     Dates: start: 20000101
  3. LANTUS [Concomitant]

REACTIONS (6)
  - CHONDROPATHY [None]
  - FLANK PAIN [None]
  - GAIT DISTURBANCE [None]
  - GLAUCOMA [None]
  - HEART RATE INCREASED [None]
  - HYPERTENSION [None]
